FAERS Safety Report 9097699 (Version 3)
Quarter: 2013Q2

REPORT INFORMATION
  Report Type: Report from Study
  Country: CA (occurrence: CA)
  Receive Date: 20130212
  Receipt Date: 20130523
  Transmission Date: 20140414
  Serious: Yes (Other)
  Sender: FDA-Public Use
  Company Number: CA-ROCHE-1190048

PATIENT
  Age: 74 Year
  Sex: Female
  Weight: 79.4 kg

DRUGS (13)
  1. RITUXAN [Suspect]
     Indication: RHEUMATOID ARTHRITIS
     Route: 042
     Dates: start: 20130110
  2. ZOLOFT [Concomitant]
  3. COVERSYL [Concomitant]
  4. SINGULAIR [Concomitant]
  5. SYNTHROID [Concomitant]
  6. THYROID [Concomitant]
  7. CRESTOR [Concomitant]
  8. PARIET [Concomitant]
  9. DIPHENHYDRAMINE HCL [Concomitant]
     Indication: PREMEDICATION
     Route: 048
     Dates: start: 20130110
  10. ACETAMINOPHEN [Concomitant]
     Indication: PREMEDICATION
     Route: 048
     Dates: start: 20130110
  11. METHYLPREDNISOLONE [Concomitant]
     Indication: PREMEDICATION
     Route: 042
     Dates: start: 20130110
  12. VOLTAREN [Concomitant]
  13. FOLIC ACID [Concomitant]

REACTIONS (1)
  - Retinal detachment [Not Recovered/Not Resolved]
